FAERS Safety Report 8328850-X (Version None)
Quarter: 2012Q2

REPORT INFORMATION
  Report Type: 
  Country: None (occurrence: None)
  Receive Date: 20120502
  Receipt Date: 20100914
  Transmission Date: 20120825
  Serious: No
  Sender: FDA-Public Use
  Company Number: US-TEVA-2010004878

PATIENT
  Sex: Female
  Weight: 92.616 kg

DRUGS (4)
  1. NUVIGIL [Suspect]
     Dosage: 250 MILLIGRAM;
     Route: 048
     Dates: start: 20100909
  2. IBUPROFEN TABLETS [Concomitant]
     Indication: HEADACHE
     Route: 048
  3. NUVIGIL [Suspect]
     Indication: FATIGUE
     Dosage: 150 MILLIGRAM;
     Route: 048
     Dates: start: 20100801, end: 20100908
  4. TYLENOL (CAPLET) [Concomitant]
     Indication: HEADACHE
     Route: 048

REACTIONS (7)
  - DISORIENTATION [None]
  - DRUG INEFFECTIVE FOR UNAPPROVED INDICATION [None]
  - HEADACHE [None]
  - INSOMNIA [None]
  - CHEST DISCOMFORT [None]
  - TREMOR [None]
  - DRUG EFFECT INCREASED [None]
